FAERS Safety Report 8988499 (Version 1)
Quarter: 2012Q4

REPORT INFORMATION
  Report Type: Spontaneous
  Country: US (occurrence: None)
  Receive Date: 20121224
  Receipt Date: 20121224
  Transmission Date: 20130627
  Serious: No
  Sender: FDA-Public Use
  Company Number: None

PATIENT
  Age: 39 Year
  Sex: Female
  Weight: 61.69 kg

DRUGS (1)
  1. AZITHROMYCIN 500MG PAKTAB SANDOZ [Suspect]
     Indication: RESPIRATORY INFECTION
     Dates: start: 20121217, end: 20121221

REACTIONS (5)
  - Diarrhoea [None]
  - Nausea [None]
  - Decreased appetite [None]
  - Muscle spasms [None]
  - Weight decreased [None]
